FAERS Safety Report 23023270 (Version 9)
Quarter: 2025Q3

REPORT INFORMATION
  Report Type: Report from Study
  Country: CA (occurrence: CA)
  Receive Date: 20231003
  Receipt Date: 20250711
  Transmission Date: 20251021
  Serious: Yes (Other)
  Sender: SANDOZ
  Company Number: CA-002147023-NVSC2023CA059073

PATIENT
  Age: 39 Year
  Sex: Female

DRUGS (4)
  1. HYRIMOZ [Suspect]
     Active Substance: ADALIMUMAB-ADAZ
     Dosage: 80MG - WEEK 0, THEN 40MG EVERY OTHER WEEK - WEEK 1;EVERY TWO WEEKS
     Route: 058
     Dates: start: 20230306
  2. HYRIMOZ [Suspect]
     Active Substance: ADALIMUMAB-ADAZ
     Dosage: 40 MG, Q2W (40 MG / 0.8 ML)
     Route: 058
     Dates: start: 20250219
  3. HYRIMOZ [Suspect]
     Active Substance: ADALIMUMAB-ADAZ
     Indication: Psoriasis
     Dosage: 40 MG, Q2W (80MG - WEEK 0, THEN 40MG EVERY OTHER WEEK - WEEK 1;EVERY TWO WEEKS)40 MG / 0.8 ML (PEN)
     Route: 058
     Dates: start: 20230306
  4. HYRIMOZ [Suspect]
     Active Substance: ADALIMUMAB-ADAZ
     Route: 065
     Dates: start: 20230321

REACTIONS (18)
  - Loss of consciousness [Unknown]
  - Skin discomfort [Unknown]
  - Pain of skin [Unknown]
  - Spinal stenosis [Unknown]
  - Scab [Unknown]
  - Arthropathy [Unknown]
  - Psoriasis [Not Recovered/Not Resolved]
  - Rash [Unknown]
  - Pruritus [Unknown]
  - Insomnia [Unknown]
  - Therapeutic product effect incomplete [Unknown]
  - Drug ineffective [Unknown]
  - General physical health deterioration [Unknown]
  - Photosensitivity reaction [Unknown]
  - Product use issue [Unknown]
  - Inappropriate schedule of product administration [Unknown]
  - Product dose omission issue [Unknown]
  - Off label use [Unknown]

NARRATIVE: CASE EVENT DATE: 20230808
